FAERS Safety Report 8758700 (Version 1)
Quarter: 2012Q4

REPORT INFORMATION
  Report Type: 
  Country: US (occurrence: US)
  Receive Date: 20120829
  Receipt Date: 20120829
  Transmission Date: 20130627
  Serious: Yes (Other)
  Sender: FDA-Public Use
  Company Number: US-BAYER-2012-087291

PATIENT
  Age: 26 Year
  Sex: Female
  Weight: 72 kg

DRUGS (20)
  1. YAZ [Suspect]
  2. GIANVI [Suspect]
  3. ALEVE [Concomitant]
     Dosage: 1 tab
  4. AMITRIPTYLINE [Concomitant]
     Dosage: 50
     Dates: start: 20110109
  5. ETODOLAC [Concomitant]
     Dosage: 400 mg, UNK
     Dates: start: 20110124
  6. IBUPROFEN [Concomitant]
     Dosage: UNK UNK, PRN
     Dates: start: 20110201
  7. NAPROSYN [Concomitant]
     Dosage: 500 mg, BID
     Dates: start: 20110214
  8. NUBAIN [Concomitant]
     Dosage: 20 mg, UNK
     Route: 029
     Dates: start: 20110221
  9. FLEXERIL [Concomitant]
     Dosage: 10 mg, UNK
     Route: 048
     Dates: start: 20110221
  10. DECADRON A [Concomitant]
     Dosage: 8 mg, UNK
     Route: 030
     Dates: start: 20110221
  11. PERCOCET [OXYCODONE HYDROCHLORIDE,PARACETAMOL] [Concomitant]
     Dosage: Q 6
     Dates: start: 20110221
  12. PERCOCET [OXYCODONE HYDROCHLORIDE,PARACETAMOL] [Concomitant]
     Dosage: 1 tab
     Route: 048
     Dates: start: 20110221
  13. METHYLPREDNISOLON [Concomitant]
     Dosage: UNK
     Dates: start: 20110222
  14. HYDROCODONE W/IBUPROFEN [Concomitant]
     Dosage: UNK
     Dates: start: 20110222
  15. DILANTIN [Concomitant]
     Dosage: 300 mg, 1 times a day
     Route: 048
     Dates: start: 20110222
  16. PROZAC [Concomitant]
     Dosage: 46 mg, 1 times a day
     Route: 048
     Dates: start: 20110306
  17. SOMA [Concomitant]
     Indication: PAIN
     Dosage: 350 mg, 3 times a day
     Route: 048
     Dates: start: 20110306
  18. TRAMADOL [Concomitant]
     Dosage: 50 mg, PRN, every 4-6 hours
     Route: 048
     Dates: start: 20110306
  19. NEURONTIN [Concomitant]
     Dosage: 600 mg, 1 AM, 2 PM
     Route: 048
     Dates: start: 20110309
  20. XANAX [Concomitant]
     Dosage: 2 mg, at bedtime
     Route: 048
     Dates: start: 20100729, end: 20110711

REACTIONS (1)
  - Pulmonary embolism [None]
